FAERS Safety Report 7586851-3 (Version None)
Quarter: 2011Q3

REPORT INFORMATION
  Report Type: 
  Country: None (occurrence: None)
  Receive Date: 20110701
  Receipt Date: 20110629
  Transmission Date: 20111222
  Serious: Yes (Other)
  Sender: FDA-Public Use
  Company Number: US-CEPHALON-2011003434

PATIENT
  Sex: Female

DRUGS (2)
  1. RITUXAN [Concomitant]
     Indication: LYMPHOMA
  2. TREANDA [Suspect]
     Indication: LYMPHOMA
     Route: 042

REACTIONS (3)
  - NEUTROPENIA [None]
  - EOSINOPHILIA [None]
  - CYTOMEGALOVIRUS INFECTION [None]
